FAERS Safety Report 7324201-8 (Version None)
Quarter: 2011Q1

REPORT INFORMATION
  Report Type: 
  Country: None (occurrence: None)
  Receive Date: 20110301
  Receipt Date: 20110221
  Transmission Date: 20110831
  Serious: Yes (Hospitalization)
  Sender: FDA-Public Use
  Company Number: CH-PFIZER INC-2011034521

PATIENT
  Age: 79 Year
  Sex: Female

DRUGS (3)
  1. PANTOZOL [Suspect]
     Dosage: 20 MG, 1X/DAY
     Route: 048
  2. BELOC ZOK [Suspect]
     Indication: ESSENTIAL HYPERTENSION
     Dosage: 25 MG, 1X/DAY
     Route: 048
  3. METHOTREXATE SODIUM [Suspect]
     Indication: CHONDROCALCINOSIS
     Dosage: 10 MG, WEEKLY
     Route: 048
     Dates: start: 20101208, end: 20101201

REACTIONS (5)
  - STOMATITIS [None]
  - INCORRECT DOSE ADMINISTERED [None]
  - PANCYTOPENIA [None]
  - DIARRHOEA [None]
  - ABDOMINAL PAIN [None]
